FAERS Safety Report 5572786-4 (Version None)
Quarter: 2007Q4

REPORT INFORMATION
  Report Type: 
  Country: None (occurrence: None)
  Receive Date: 20071223
  Receipt Date: 20071215
  Transmission Date: 20080405
  Serious: Yes (Other)
  Sender: FDA-Public Use
  Company Number: PHEH2007US15833

PATIENT
  Sex: Male

DRUGS (2)
  1. EXELON [Suspect]
     Indication: DEMENTIA
     Dosage: LOWER DOSE PATCH
  2. EXELON [Suspect]
     Dosage: HIGH DOSE PATCH
     Route: 062

REACTIONS (2)
  - RESIDUAL URINE VOLUME [None]
  - URINARY RETENTION [None]
